FAERS Safety Report 7218225-9 (Version None)
Quarter: 2011Q1

REPORT INFORMATION
  Report Type: 
  Country: None (occurrence: None)
  Receive Date: 20110110
  Receipt Date: 20110106
  Transmission Date: 20110831
  Serious: Yes (Death, Life-Threatening, Hospitalization, Other)
  Sender: FDA-Public Use
  Company Number: PHHO2008US00901

PATIENT
  Sex: Male
  Weight: 82 kg

DRUGS (9)
  1. DIURETICS [Concomitant]
  2. ANALGESICS [Concomitant]
  3. STI571/CGP57148B [Suspect]
     Indication: CHRONIC MYELOID LEUKAEMIA
     Dosage: 400 MG, QD
     Route: 048
     Dates: start: 20001107
  4. MILRINONE [Concomitant]
  5. LIPITOR [Concomitant]
     Indication: BLOOD CHOLESTEROL INCREASED
  6. LENOXIN [Concomitant]
     Indication: CARDIAC FAILURE CONGESTIVE
  7. ACE INHIBITOR NOS [Concomitant]
  8. ANTINEOPLASTIC AGENTS [Concomitant]
  9. WARFARIN [Concomitant]

REACTIONS (15)
  - LEFT VENTRICULAR DYSFUNCTION [None]
  - EJECTION FRACTION DECREASED [None]
  - ASCITES [None]
  - CARDIAC FAILURE CONGESTIVE [None]
  - WEIGHT INCREASED [None]
  - DYSPNOEA [None]
  - MITRAL VALVE INCOMPETENCE [None]
  - RENAL FAILURE [None]
  - CARDIAC FAILURE [None]
  - ABDOMINAL DISTENSION [None]
  - PULMONARY HYPERTENSION [None]
  - DILATATION VENTRICULAR [None]
  - TRICUSPID VALVE INCOMPETENCE [None]
  - VENTRICULAR HYPOKINESIA [None]
  - HAEMOPTYSIS [None]
